FAERS Safety Report 16084238 (Version 14)
Quarter: 2022Q2

REPORT INFORMATION
  Report Type: Spontaneous
  Country: US (occurrence: US)
  Receive Date: 20190318
  Receipt Date: 20220503
  Transmission Date: 20220720
  Serious: No
  Sender: FDA-Public Use
  Company Number: US-PFIZER INC-2019115637

PATIENT
  Age: 39 Year
  Sex: Female

DRUGS (2)
  1. LYRICA [Suspect]
     Active Substance: PREGABALIN
     Indication: Mood swings
     Dosage: UNK
  2. LYRICA [Suspect]
     Active Substance: PREGABALIN
     Indication: Anxiety

REACTIONS (8)
  - Off label use [Unknown]
  - Drug effective for unapproved indication [Unknown]
  - Malaise [Unknown]
  - Cognitive disorder [Unknown]
  - Pain in extremity [Unknown]
  - Speech disorder [Unknown]
  - Influenza [Unknown]
  - Thinking abnormal [Unknown]
